FAERS Safety Report 6037994-7 (Version None)
Quarter: 2009Q1

REPORT INFORMATION
  Report Type: 
  Country: None (occurrence: None)
  Receive Date: 20090114
  Receipt Date: 20090114
  Transmission Date: 20090719
  Serious: Yes (Other)
  Sender: FDA-Public Use
  Company Number: None

PATIENT
  Sex: Female
  Weight: 85.7298 kg

DRUGS (2)
  1. AMOXICILLIN [Suspect]
     Dosage: BID P.O. 047
     Route: 048
     Dates: start: 20081208, end: 20081212
  2. PREVACID [Suspect]
     Dosage: BID P.O 047
     Route: 048
     Dates: start: 20081208, end: 20081212

REACTIONS (1)
  - CLOSTRIDIUM DIFFICILE COLITIS [None]
